FAERS Safety Report 21200986 (Version 1)
Quarter: 2022Q3

REPORT INFORMATION
  Report Type: Spontaneous
  Country: US (occurrence: None)
  Receive Date: 20220810
  Receipt Date: 20220810
  Transmission Date: 20221027
  Serious: Yes (Other)
  Sender: FDA-Public Use
  Company Number: None

PATIENT
  Age: 56 Year
  Sex: Male

DRUGS (12)
  1. OPSUMIT [Suspect]
     Active Substance: MACITENTAN
     Indication: Pulmonary arterial hypertension
     Dosage: FREQUENCY : DAILY;?
     Route: 048
     Dates: start: 20220711
  2. SILDENAFIL [Suspect]
     Active Substance: SILDENAFIL
  3. METOPROLOL [Concomitant]
  4. LASIX [Concomitant]
     Active Substance: FUROSEMIDE
  5. FLOMAX [Concomitant]
     Active Substance: TAMSULOSIN HYDROCHLORIDE
  6. INSULIN LISPRO [Concomitant]
  7. INSULIN GLARGINE [Concomitant]
  8. ASPIRIN [Concomitant]
  9. VITAMIN D3 [Concomitant]
     Active Substance: CHOLECALCIFEROL
  10. VITAMIN #, [Concomitant]
  11. TYLENOL [Concomitant]
     Active Substance: ACETAMINOPHEN
  12. BENADRYL [Concomitant]

REACTIONS (5)
  - Hypotension [None]
  - Dizziness [None]
  - Dialysis [None]
  - Atrial fibrillation [None]
  - Infection masked [None]

NARRATIVE: CASE EVENT DATE: 20220726
